FAERS Safety Report 5149831-3 (Version None)
Quarter: 2006Q4

REPORT INFORMATION
  Report Type: 
  Country: None (occurrence: None)
  Receive Date: 20060918
  Receipt Date: 20060316
  Transmission Date: 20070319
  Serious: Yes (Other)
  Sender: FDA-Public Use
  Company Number: US-JNJFOC-20060304676

PATIENT
  Age: 51 Year
  Sex: Female

DRUGS (5)
  1. TOPAMAX [Suspect]
     Indication: MIGRAINE PROPHYLAXIS
     Dosage: SEE IMAGE
     Route: 048
     Dates: start: 20040116
  2. WELLBUTRIN SR [Suspect]
     Indication: DEPRESSION
     Dosage: SEE IMAGE
     Route: 048
     Dates: start: 20040901
  3. TRAZODONE HCL [Concomitant]
  4. IMITREX [Concomitant]
  5. SUDAFED 12 HOUR [Concomitant]

REACTIONS (4)
  - APHASIA [None]
  - ELECTROENCEPHALOGRAM ABNORMAL [None]
  - MEMORY IMPAIRMENT [None]
  - MIGRAINE [None]
